FAERS Safety Report 6615132-7 (Version None)
Quarter: 2010Q1

REPORT INFORMATION
  Report Type: 
  Country: None (occurrence: None)
  Receive Date: 20100226
  Receipt Date: 20100212
  Transmission Date: 20100710
  Serious: Yes (Other)
  Sender: FDA-Public Use
  Company Number: 2009003470

PATIENT
  Age: 69 Year
  Sex: Female
  Weight: 57.5 kg

DRUGS (1)
  1. ERLOTINIB (ERLOTINIB) (TABLET) (ERLOTINIB) [Suspect]
     Indication: LUNG ADENOCARCINOMA
     Dosage: (150 MG, QD) , ORAL
     Route: 048
     Dates: start: 20090210, end: 20090227

REACTIONS (8)
  - ASPARTATE AMINOTRANSFERASE INCREASED [None]
  - BLOOD ALKALINE PHOSPHATASE INCREASED [None]
  - BLOOD BILIRUBIN INCREASED [None]
  - BLOOD LACTATE DEHYDROGENASE INCREASED [None]
  - BLOOD UREA INCREASED [None]
  - DERMATITIS ALLERGIC [None]
  - GAMMA-GLUTAMYLTRANSFERASE INCREASED [None]
  - HENOCH-SCHONLEIN PURPURA [None]
